FAERS Safety Report 25545622 (Version 1)
Quarter: 2025Q3

REPORT INFORMATION
  Report Type: Spontaneous
  Country: EU (occurrence: EU)
  Receive Date: 20250712
  Receipt Date: 20250712
  Transmission Date: 20251020
  Serious: Yes (Other)
  Sender: CELLTRION
  Company Number: EU-SUN PHARMACEUTICAL INDUSTRIES LTD-2025RR-498086

PATIENT

DRUGS (9)
  1. BEVACIZUMAB [Suspect]
     Active Substance: BEVACIZUMAB
     Indication: Colon cancer
     Route: 042
  2. ESCITALOPRAM [Interacting]
     Active Substance: ESCITALOPRAM OXALATE
     Indication: Depression
     Route: 065
  3. IRINOTECAN [Suspect]
     Active Substance: IRINOTECAN
     Indication: Colon cancer
     Route: 042
  4. DICLOFENAC [Suspect]
     Active Substance: DICLOFENAC
     Indication: Pain
     Route: 065
  5. DICLOFENAC [Suspect]
     Active Substance: DICLOFENAC
     Indication: Burning sensation
  6. DICLOFENAC [Suspect]
     Active Substance: DICLOFENAC
     Indication: Hypoaesthesia
  7. LEUCOVORIN CALCIUM [Suspect]
     Active Substance: LEUCOVORIN CALCIUM
     Indication: Colon cancer
     Route: 042
  8. FLUOROURACIL [Suspect]
     Active Substance: FLUOROURACIL
     Indication: Colon cancer
     Route: 042
  9. FLUOROURACIL [Suspect]
     Active Substance: FLUOROURACIL
     Route: 042

REACTIONS (1)
  - Hyponatraemia [Unknown]
